FAERS Safety Report 4824900-3 (Version None)
Quarter: 2005Q4

REPORT INFORMATION
  Report Type: 
  Country: None (occurrence: None)
  Receive Date: 20051110
  Receipt Date: 20051104
  Transmission Date: 20060501
  Serious: Yes (Hospitalization)
  Sender: FDA-Public Use
  Company Number: 20053026

PATIENT
  Age: 75 Year
  Sex: Male

DRUGS (8)
  1. DIGOXIN [Suspect]
     Indication: ATRIAL FIBRILLATION
     Dosage: 62.5MCG PER DAY
     Route: 048
  2. RAMIPRIL [Concomitant]
     Indication: CARDIAC FAILURE
     Dosage: 2.5MG PER DAY
     Route: 048
  3. METFORMIN [Concomitant]
     Indication: DIABETES MELLITUS
     Dosage: 500MG THREE TIMES PER DAY
     Route: 048
  4. ATORVASTATIN CALCIUM [Concomitant]
     Indication: HYPERCHOLESTEROLAEMIA
     Dosage: 10MG AT NIGHT
     Route: 048
  5. BISOPROLOL [Concomitant]
     Indication: CARDIAC FAILURE
     Dosage: 2.5MG PER DAY
     Route: 048
  6. GLICLAZIDE [Concomitant]
     Indication: DIABETES MELLITUS
     Dosage: 40MG PER DAY
     Route: 048
  7. ADCAL [Concomitant]
     Route: 048
  8. WARFARIN [Concomitant]
     Indication: ATRIAL FIBRILLATION
     Dosage: 4MG PER DAY
     Route: 048

REACTIONS (7)
  - ANAEMIA [None]
  - DIARRHOEA [None]
  - DRUG INEFFECTIVE [None]
  - HYPOCALCAEMIA [None]
  - HYPOTHYROIDISM [None]
  - VOMITING [None]
  - WEIGHT DECREASED [None]
